FAERS Safety Report 10711097 (Version 4)
Quarter: 2015Q1

REPORT INFORMATION
  Report Type: Report from Study
  Country: US (occurrence: US)
  Receive Date: 20150114
  Receipt Date: 20150320
  Transmission Date: 20150721
  Serious: Yes (Hospitalization)
  Sender: FDA-Public Use
  Company Number: US-SA-2014SA106142

PATIENT
  Age: 41 Year
  Sex: Male

DRUGS (1)
  1. AUBAGIO [Suspect]
     Active Substance: TERIFLUNOMIDE
     Indication: MULTIPLE SCLEROSIS
     Route: 048
     Dates: start: 20140731

REACTIONS (11)
  - Chromaturia [Unknown]
  - Irritability [Unknown]
  - Pneumonia [Unknown]
  - Urine abnormality [Unknown]
  - Fatigue [Recovered/Resolved]
  - Depression [Unknown]
  - Apathy [Unknown]
  - Fatigue [Unknown]
  - Somnolence [Recovered/Resolved]
  - Mood swings [Unknown]
  - Urine odour abnormal [Unknown]

NARRATIVE: CASE EVENT DATE: 201408
